FAERS Safety Report 21146546 (Version 1)
Quarter: 2022Q3

REPORT INFORMATION
  Report Type: Report from Study
  Country: GB (occurrence: GB)
  Receive Date: 20220729
  Receipt Date: 20220729
  Transmission Date: 20221026
  Serious: Yes (Hospitalization)
  Sender: FDA-Public Use
  Company Number: GB-GBT-014600

PATIENT
  Age: 16 Year
  Sex: Female
  Weight: 62.2 kg

DRUGS (6)
  1. VOXELOTOR [Suspect]
     Active Substance: VOXELOTOR
     Indication: Haemolytic anaemia
     Route: 048
     Dates: start: 2022
  2. VOXELOTOR [Suspect]
     Active Substance: VOXELOTOR
     Indication: Haemolytic anaemia
     Route: 048
     Dates: start: 20220214
  3. VOXELOTOR [Suspect]
     Active Substance: VOXELOTOR
     Indication: Haemolytic anaemia
     Dosage: 09-FEB-2022-DATE OF LAST DOSE PRIOR TO THE EVENT.
     Route: 048
     Dates: start: 20220207, end: 20220212
  4. VOXELOTOR [Concomitant]
     Active Substance: VOXELOTOR
  5. HYDROXYUREA [Concomitant]
     Active Substance: HYDROXYUREA
     Indication: Sickle cell anaemia with crisis
     Route: 048
     Dates: start: 20120101
  6. GABAPENTIN [Concomitant]
     Active Substance: GABAPENTIN
     Indication: Pain
     Route: 048
     Dates: start: 2019

REACTIONS (5)
  - Sickle cell anaemia with crisis [Unknown]
  - Off label use [Unknown]
  - Therapy interrupted [Unknown]
  - Abdominal pain [Recovered/Resolved]
  - Pain [Unknown]

NARRATIVE: CASE EVENT DATE: 20220209
